FAERS Safety Report 20814222 (Version 1)
Quarter: 2022Q2

REPORT INFORMATION
  Report Type: Spontaneous
  Country: FR (occurrence: FR)
  Receive Date: 20220511
  Receipt Date: 20220511
  Transmission Date: 20220721
  Serious: Yes (Other)
  Sender: FDA-Public Use
  Company Number: None

PATIENT
  Age: 53 Year
  Sex: Female

DRUGS (3)
  1. ALPRAZOLAM [Suspect]
     Active Substance: ALPRAZOLAM
     Dosage: UNK
     Route: 048
     Dates: start: 20220219, end: 20220219
  2. ACETAMINOPHEN\OPIUM [Suspect]
     Active Substance: ACETAMINOPHEN\OPIUM
     Indication: Arthralgia
     Dosage: UNK
     Route: 048
     Dates: start: 20220219, end: 20220219
  3. GAVISCON [ALUMINIUM HYDROXIDE;CALCIUM CARBONATE;SODIUM ALGINATE;SODIUM [Concomitant]
     Dosage: UNK
     Route: 048
     Dates: start: 20220219, end: 20220219

REACTIONS (5)
  - Loss of consciousness [Recovered/Resolved]
  - Gastrointestinal disorder [Recovering/Resolving]
  - Fall [Recovered/Resolved]
  - Malaise [Recovering/Resolving]
  - Head injury [Recovering/Resolving]

NARRATIVE: CASE EVENT DATE: 20220219
